FAERS Safety Report 23940763 (Version 2)
Quarter: 2024Q2

REPORT INFORMATION
  Report Type: Spontaneous
  Country: IL (occurrence: IL)
  Receive Date: 20240605
  Receipt Date: 20240618
  Transmission Date: 20240716
  Serious: Yes (Hospitalization)
  Sender: FDA-Public Use
  Company Number: IL-Accord-427640

PATIENT
  Age: 41 Year
  Sex: Female
  Weight: 60 kg

DRUGS (4)
  1. GEMCITABINE [Suspect]
     Active Substance: GEMCITABINE
     Indication: Hormone receptor positive HER2 negative breast cancer
     Dosage: 650 MG/M2 ON DAYS 1 AND 8, WITH CYCLES REPEATING EVERY 21 DAYS FOR 7 CYCLES
  2. CISPLATIN [Concomitant]
     Active Substance: CISPLATIN
     Indication: Breast cancer metastatic
     Dosage: 25 MG/M2 ON DAYS 1 AND 8, WITH CYCLES REPEATING EVERY 21 DAYS
  3. CISPLATIN [Concomitant]
     Active Substance: CISPLATIN
     Indication: Hormone receptor positive HER2 negative breast cancer
     Dosage: 25 MG/M2 ON DAYS 1 AND 8, WITH CYCLES REPEATING EVERY 21 DAYS
  4. GEMCITABINE [Suspect]
     Active Substance: GEMCITABINE
     Indication: Breast cancer metastatic
     Dosage: 650 MG/M2 ON DAYS 1 AND 8, WITH CYCLES REPEATING EVERY 21 DAYS FOR 7 CYCLES

REACTIONS (2)
  - Muscle necrosis [Recovered/Resolved]
  - Recall phenomenon [Recovered/Resolved]
